FAERS Safety Report 9449745 (Version 2)
Quarter: 2013Q3

REPORT INFORMATION
  Report Type: Report from Study
  Country: JP (occurrence: JP)
  Receive Date: 20130809
  Receipt Date: 20130829
  Transmission Date: 20140515
  Serious: No
  Sender: FDA-Public Use
  Company Number: JP-JNJFOC-20130801270

PATIENT
  Age: 47 Year
  Sex: Male
  Weight: 62 kg

DRUGS (10)
  1. STELARA [Suspect]
     Indication: PSORIASIS
     Route: 058
     Dates: start: 20121127, end: 20121127
  2. STELARA [Suspect]
     Indication: PSORIASIS
     Route: 058
     Dates: start: 20121225, end: 20121225
  3. STELARA [Suspect]
     Indication: PSORIASIS
     Route: 058
     Dates: start: 20130611
  4. STELARA [Suspect]
     Indication: PSORIASIS
     Route: 058
     Dates: start: 20130315, end: 20130315
  5. NEORAL [Concomitant]
     Indication: PSORIASIS
     Route: 048
     Dates: start: 20120723, end: 20121104
  6. NEORAL [Concomitant]
     Indication: PSORIASIS
     Route: 048
     Dates: start: 20121105, end: 20121210
  7. DOVONEX [Concomitant]
     Indication: PSORIASIS
     Route: 061
  8. KINDAVATE [Concomitant]
     Indication: PSORIASIS
     Route: 061
     Dates: start: 20130205
  9. ANTEBATE [Concomitant]
     Indication: PSORIASIS
     Route: 061
     Dates: start: 20121225, end: 20130205
  10. BONALFA [Concomitant]
     Indication: PSORIASIS
     Route: 061

REACTIONS (2)
  - Hepatic function abnormal [Recovered/Resolved]
  - Nasopharyngitis [Recovered/Resolved]
